FAERS Safety Report 25523015 (Version 1)
Quarter: 2025Q3

REPORT INFORMATION
  Report Type: Spontaneous
  Country: US (occurrence: US)
  Receive Date: 20250707
  Receipt Date: 20250707
  Transmission Date: 20251020
  Serious: Yes (Other)
  Sender: DR REDDYS
  Company Number: US-DRL-USA-USA/2025/06/009481

PATIENT
  Sex: Female

DRUGS (8)
  1. TIMOLOL [Suspect]
     Active Substance: TIMOLOL
     Indication: Intraocular pressure increased
     Route: 061
  2. BRIMONIDINE [Suspect]
     Active Substance: BRIMONIDINE TARTRATE
     Indication: Intraocular pressure increased
     Route: 061
  3. DORZOLAMIDE [Concomitant]
     Active Substance: DORZOLAMIDE
     Indication: Intraocular pressure increased
     Route: 061
  4. ACETAZOLAMIDE [Concomitant]
     Active Substance: ACETAZOLAMIDE
     Indication: Intraocular pressure increased
     Route: 048
  5. ATROPINE [Concomitant]
     Active Substance: ATROPINE
     Indication: Intraocular pressure increased
  6. PREDNISOLONE ACETATE [Concomitant]
     Active Substance: PREDNISOLONE ACETATE
     Indication: Intraocular pressure increased
  7. MANNITOL [Concomitant]
     Active Substance: MANNITOL
     Indication: Intraocular pressure increased
  8. BUPROPION [Concomitant]
     Active Substance: BUPROPION
     Indication: Smoking cessation therapy

REACTIONS (1)
  - Drug ineffective [Unknown]
